FAERS Safety Report 21359356 (Version 1)
Quarter: 2022Q3

REPORT INFORMATION
  Report Type: Spontaneous
  Country: US (occurrence: US)
  Receive Date: 20220921
  Receipt Date: 20220921
  Transmission Date: 20221026
  Serious: No
  Sender: FDA-Public Use
  Company Number: US-BEH-2022149648

PATIENT
  Sex: Female

DRUGS (28)
  1. HIZENTRA [Suspect]
     Active Substance: HUMAN IMMUNOGLOBULIN G
     Indication: Immunodeficiency common variable
     Dosage: 14 GRAM, QOW
     Route: 058
     Dates: start: 20220819
  2. ABILIFY [Concomitant]
     Active Substance: ARIPIPRAZOLE
  3. AMITRIPTYLINE [Concomitant]
     Active Substance: AMITRIPTYLINE
  4. ATACAND [Concomitant]
     Active Substance: CANDESARTAN CILEXETIL
  5. ATENOLOL [Concomitant]
     Active Substance: ATENOLOL
  6. BACLOFEN [Concomitant]
     Active Substance: BACLOFEN
  7. ASPIRIN [Concomitant]
     Active Substance: ASPIRIN
  8. BENADRYL [Concomitant]
     Active Substance: DIPHENHYDRAMINE HYDROCHLORIDE
  9. CONCERTA [Concomitant]
     Active Substance: METHYLPHENIDATE HYDROCHLORIDE
  10. CREON [Concomitant]
     Active Substance: PANCRELIPASE AMYLASE\PANCRELIPASE LIPASE\PANCRELIPASE PROTEASE
  11. ESTRADIOL [Concomitant]
     Active Substance: ESTRADIOL
  12. FLONASE [Concomitant]
     Active Substance: FLUTICASONE PROPIONATE
  13. FROVA [Concomitant]
     Active Substance: FROVATRIPTAN SUCCINATE
  14. LASIX [Concomitant]
     Active Substance: FUROSEMIDE
  15. LEXAPRO [Concomitant]
     Active Substance: ESCITALOPRAM OXALATE
  16. LIDOCAINE\PRILOCAINE [Concomitant]
     Active Substance: LIDOCAINE\PRILOCAINE
  17. MUCINEX [Concomitant]
     Active Substance: GUAIFENESIN
  18. PATANOL [Concomitant]
     Active Substance: OLOPATADINE HYDROCHLORIDE
  19. PEPCID AC [Concomitant]
     Active Substance: FAMOTIDINE
  20. POTASSIUM CHLORIDE [Concomitant]
     Active Substance: POTASSIUM CHLORIDE
  21. PROBIOTICS NOS [Concomitant]
     Active Substance: PROBIOTICS NOS
  22. PROMETRIUM [Concomitant]
     Active Substance: PROGESTERONE
  23. SYNTHROID [Concomitant]
     Active Substance: LEVOTHYROXINE SODIUM
  24. TUMS CHEWIES [Concomitant]
  25. TYLENOL [Concomitant]
     Active Substance: ACETAMINOPHEN
  26. XANAX [Concomitant]
     Active Substance: ALPRAZOLAM
  27. XIFAXAN [Concomitant]
     Active Substance: RIFAXIMIN
  28. ZYRTEC [Concomitant]
     Active Substance: CETIRIZINE HYDROCHLORIDE

REACTIONS (1)
  - Headache [Recovering/Resolving]
